FAERS Safety Report 26090666 (Version 2)
Quarter: 2025Q4

REPORT INFORMATION
  Report Type: Spontaneous
  Country: US (occurrence: US)
  Receive Date: 20251126
  Receipt Date: 20251127
  Transmission Date: 20260118
  Serious: Yes (Life-Threatening, Hospitalization, Other)
  Sender: AUROBINDO
  Company Number: US-AUROBINDO-AUR-APL-2025-058874

PATIENT
  Age: 71 Year
  Sex: Male

DRUGS (20)
  1. RISPERIDONE [Suspect]
     Active Substance: RISPERIDONE
     Indication: Product used for unknown indication
     Dosage: 3 MILLIGRAM, TWO TIMES A DAY
     Route: 065
  2. TRAZODONE [Suspect]
     Active Substance: TRAZODONE HYDROCHLORIDE
     Indication: Product used for unknown indication
     Dosage: 50 MILLIGRAM, DAILY
     Route: 065
  3. IBUPROFEN [Suspect]
     Active Substance: IBUPROFEN
     Indication: Cough
     Dosage: UNK
     Route: 065
  4. IBUPROFEN [Suspect]
     Active Substance: IBUPROFEN
     Indication: Influenza like illness
  5. IBUPROFEN [Suspect]
     Active Substance: IBUPROFEN
     Indication: Dyspnoea
  6. OSELTAMIVIR [Concomitant]
     Active Substance: OSELTAMIVIR
     Indication: Product used for unknown indication
     Dosage: UNK
     Route: 065
  7. POTASSIUM CHLORIDE [Concomitant]
     Active Substance: POTASSIUM CHLORIDE
     Indication: Product used for unknown indication
     Dosage: UNK
     Route: 065
  8. ALBUTEROL\IPRATROPIUM [Concomitant]
     Active Substance: ALBUTEROL\IPRATROPIUM
     Indication: Product used for unknown indication
     Dosage: 0.5MG?3MG/3ML
     Route: 065
  9. RINGERS SOLUTION [Concomitant]
     Active Substance: CALCIUM CHLORIDE\POTASSIUM CHLORIDE\SODIUM CHLORIDE
     Indication: Blood creatine phosphokinase MB increased
     Dosage: 200ML/H
  10. RINGERS SOLUTION [Concomitant]
     Active Substance: CALCIUM CHLORIDE\POTASSIUM CHLORIDE\SODIUM CHLORIDE
     Indication: Urine output decreased
  11. SODIUM BICARBONATE [Concomitant]
     Active Substance: SODIUM BICARBONATE
     Indication: Blood creatine phosphokinase MB increased
     Dosage: 650 MILLIGRAM, TWO TIMES A DAY
     Route: 065
  12. SODIUM BICARBONATE [Concomitant]
     Active Substance: SODIUM BICARBONATE
     Indication: Urine output decreased
  13. AZITHROMYCIN [Concomitant]
     Active Substance: AZITHROMYCIN
     Indication: Wheezing
     Dosage: 500 MILLIGRAM
     Route: 065
  14. PREDNISONE [Concomitant]
     Active Substance: PREDNISONE
     Indication: Wheezing
     Dosage: 40 MILLIGRAM
     Route: 065
  15. FUROSEMIDE [Concomitant]
     Active Substance: FUROSEMIDE
     Indication: Hyperkalaemia
     Dosage: UNK
     Route: 065
  16. CALCIUM GLUCONATE [Concomitant]
     Active Substance: CALCIUM GLUCONATE
     Indication: Hyperkalaemia
     Dosage: UNK
     Route: 065
  17. DEXTROSE [Concomitant]
     Active Substance: DEXTROSE MONOHYDRATE
     Indication: Hyperkalaemia
     Dosage: UNK
     Route: 065
  18. INSULIN LISPRO [Concomitant]
     Active Substance: INSULIN LISPRO
     Indication: Hyperkalaemia
     Dosage: UNK
     Route: 065
  19. ZIRCONIUM [Concomitant]
     Active Substance: ZIRCONIUM
     Indication: Hyperkalaemia
     Dosage: UNK
     Route: 065
  20. IBUPROFEN [Concomitant]
     Active Substance: IBUPROFEN
     Indication: Influenza like illness
     Dosage: UNK
     Route: 065

REACTIONS (8)
  - Rhabdomyolysis [Recovered/Resolved]
  - Renal injury [Recovered/Resolved]
  - Fall [Recovered/Resolved]
  - Arthralgia [Unknown]
  - Haematoma [Unknown]
  - Pulmonary oedema [Recovering/Resolving]
  - Hyperkalaemia [Recovered/Resolved]
  - Drug ineffective [Unknown]
